FAERS Safety Report 9836702 (Version 4)
Quarter: 2014Q1

REPORT INFORMATION
  Report Type: Spontaneous
  Country: US (occurrence: US)
  Receive Date: 20140123
  Receipt Date: 20140319
  Transmission Date: 20141002
  Serious: Yes (Other)
  Sender: FDA-Public Use
  Company Number: US-TEVA-457224USA

PATIENT
  Sex: Female
  Weight: 88.08 kg

DRUGS (6)
  1. COPAXONE [Suspect]
     Indication: RELAPSING-REMITTING MULTIPLE SCLEROSIS
  2. H1N1 INFLUENZA VACCINE [Suspect]
  3. LEVOTHYROXINE [Concomitant]
     Indication: THYROID DISORDER
  4. CYMBALTA [Concomitant]
     Indication: ANXIETY
  5. CYMBALTA [Concomitant]
     Indication: DEPRESSION
  6. ALLERGY MEDICATION [Concomitant]
     Indication: HYPERSENSITIVITY

REACTIONS (11)
  - Angioedema [Not Recovered/Not Resolved]
  - Myocardial infarction [Unknown]
  - Pruritus [Recovered/Resolved]
  - Erythema [Not Recovered/Not Resolved]
  - Swelling [Not Recovered/Not Resolved]
  - Musculoskeletal stiffness [Not Recovered/Not Resolved]
  - Pain [Not Recovered/Not Resolved]
  - Panic attack [Unknown]
  - Musculoskeletal stiffness [Recovered/Resolved with Sequelae]
  - Impaired driving ability [Unknown]
  - Pain in extremity [Not Recovered/Not Resolved]
